APPROVED DRUG PRODUCT: TRI-PREVIFEM
Active Ingredient: ETHINYL ESTRADIOL; NORGESTIMATE
Strength: 0.035MG,0.035MG,0.035MG;0.18MG,0.215MG,0.25MG
Dosage Form/Route: TABLET;ORAL-28
Application: A076335 | Product #001
Applicant: PH HEALTH LTD
Approved: Mar 26, 2004 | RLD: No | RS: No | Type: DISCN